FAERS Safety Report 9752757 (Version 2)
Quarter: 2013Q4

REPORT INFORMATION
  Report Type: Spontaneous
  Country: IT (occurrence: IT)
  Receive Date: 20131213
  Receipt Date: 20131213
  Transmission Date: 20140711
  Serious: Yes (Other)
  Sender: FDA-Public Use
  Company Number: IT-PFIZER INC-2013301229

PATIENT
  Age: 37 Year
  Sex: Male

DRUGS (6)
  1. TORVAST [Suspect]
     Indication: INFARCTION
     Dosage: 80 MG, 1X/DAY
     Route: 048
     Dates: start: 20120916, end: 20130601
  2. CARDIOASPIRIN [Concomitant]
     Indication: INFARCTION
     Dosage: 100 MG, UNK
     Route: 048
     Dates: start: 20120916, end: 20130701
  3. EFIENT [Concomitant]
     Indication: INFARCTION
     Dosage: 10 MG, UNK
     Route: 048
     Dates: start: 20120916, end: 20130701
  4. TRIATEC [Concomitant]
     Indication: INFARCTION
     Dosage: 1.25 MG, UNK
     Route: 048
     Dates: start: 20120916, end: 20130701
  5. CARDICOR [Concomitant]
     Indication: INFARCTION
     Dosage: 2.5 MG, UNK
     Route: 048
     Dates: start: 20120916, end: 20130701
  6. ESKIM [Concomitant]
     Indication: INFARCTION
     Dosage: 2000 MG, UNK
     Route: 048
     Dates: start: 20120916, end: 20130701

REACTIONS (3)
  - Blood creatine phosphokinase increased [Recovering/Resolving]
  - Blood lactate dehydrogenase increased [Recovering/Resolving]
  - Myalgia [Recovering/Resolving]
